FAERS Safety Report 14228281 (Version 2)
Quarter: 2017Q4

REPORT INFORMATION
  Report Type: Spontaneous
  Country: RU (occurrence: RU)
  Receive Date: 20171127
  Receipt Date: 20171229
  Transmission Date: 20180321
  Serious: Yes (Hospitalization)
  Sender: FDA-Public Use
  Company Number: RU-ASTRAZENECA-2017SF19733

PATIENT
  Age: 49 Year
  Sex: Male
  Weight: 77 kg

DRUGS (4)
  1. ATORVASTATIN [Concomitant]
     Active Substance: ATORVASTATIN
     Indication: HYPERCHOLESTEROLAEMIA
     Dates: start: 20171125
  2. BISOPROLOL [Concomitant]
     Active Substance: BISOPROLOL
     Dates: start: 20171125
  3. BRILINTA [Suspect]
     Active Substance: TICAGRELOR
     Indication: MYOCARDIAL INFARCTION
     Route: 048
     Dates: start: 20161125
  4. ASPIRIN. [Concomitant]
     Active Substance: ASPIRIN
     Dates: start: 20171125

REACTIONS (5)
  - Chest pain [Recovered/Resolved]
  - Epistaxis [Recovered/Resolved]
  - Off label use [Not Recovered/Not Resolved]
  - Product use issue [Not Recovered/Not Resolved]
  - Angina unstable [Unknown]

NARRATIVE: CASE EVENT DATE: 201705
